FAERS Safety Report 6936785-X (Version None)
Quarter: 2010Q3

REPORT INFORMATION
  Report Type: 
  Country: None (occurrence: None)
  Receive Date: 20100823
  Receipt Date: 20100817
  Transmission Date: 20110219
  Serious: Yes (Hospitalization, Other)
  Sender: FDA-Public Use
  Company Number: US-MERCK-1008USA00328

PATIENT
  Age: 59 Year
  Sex: Female

DRUGS (7)
  1. JANUVIA [Suspect]
     Indication: TYPE 2 DIABETES MELLITUS
     Route: 048
     Dates: start: 20070702, end: 20100209
  2. GLUCOTROL [Concomitant]
     Route: 065
     Dates: start: 20100210
  3. PROTONIX [Concomitant]
     Route: 065
  4. TEKTURNA [Concomitant]
     Route: 065
  5. LISINOPRIL [Concomitant]
     Route: 065
  6. GLUCOPHAGE [Concomitant]
     Route: 065
  7. ASPIRIN [Concomitant]
     Route: 065

REACTIONS (5)
  - GASTRITIS [None]
  - HAEMATEMESIS [None]
  - OVARIAN DISORDER [None]
  - PANCREATITIS [None]
  - PELVIC MASS [None]
